FAERS Safety Report 10384461 (Version 2)
Quarter: 2014Q3

REPORT INFORMATION
  Report Type: Spontaneous
  Country: DE (occurrence: DE)
  Receive Date: 20140814
  Receipt Date: 20140912
  Transmission Date: 20150326
  Serious: Yes (Hospitalization, Other)
  Sender: FDA-Public Use
  Company Number: DE-ASTRAZENECA-2014SE57519

PATIENT
  Age: 24081 Day
  Sex: Male
  Weight: 86 kg

DRUGS (7)
  1. ASPIRIN. [Concomitant]
     Active Substance: ASPIRIN
     Indication: INFARCTION
     Route: 048
     Dates: start: 20140602
  2. NEBIVOLOL [Concomitant]
     Active Substance: NEBIVOLOL
     Indication: INFARCTION
     Route: 048
     Dates: start: 20140602
  3. BRILIQUE [Suspect]
     Active Substance: TICAGRELOR
     Indication: INFARCTION
     Route: 048
     Dates: start: 20140602
  4. ATORVASTATIN [Concomitant]
     Active Substance: ATORVASTATIN
     Indication: HYPERCHOLESTEROLAEMIA
     Route: 048
     Dates: start: 20140602
  5. CANDESARTAN [Concomitant]
     Active Substance: CANDESARTAN
     Indication: INFARCTION
     Route: 048
     Dates: start: 20140602
  6. ATORVASTATIN [Concomitant]
     Active Substance: ATORVASTATIN
     Indication: INFARCTION
     Route: 048
     Dates: start: 20140602
  7. EPLERENONE. [Concomitant]
     Active Substance: EPLERENONE
     Indication: ISCHAEMIC CARDIOMYOPATHY
     Route: 048
     Dates: start: 20140602

REACTIONS (1)
  - Intracardiac thrombus [Not Recovered/Not Resolved]

NARRATIVE: CASE EVENT DATE: 20140723
